FAERS Safety Report 13923810 (Version 1)
Quarter: 2017Q3

REPORT INFORMATION
  Report Type: Spontaneous
  Country: US (occurrence: US)
  Receive Date: 20170831
  Receipt Date: 20170831
  Transmission Date: 20171127
  Serious: No
  Sender: FDA-Public Use
  Company Number: US-PFIZER INC-2017325901

PATIENT
  Sex: Female

DRUGS (3)
  1. METHIMAZOLE. [Suspect]
     Active Substance: METHIMAZOLE
     Indication: ATRIAL FIBRILLATION
     Dosage: 7.5 MG, WEEKLY, ^TAKES 1/2 TABLET MONDAY, WEDNESDAY, AND FRIDAY^
     Dates: start: 20170517
  2. XARELTO [Concomitant]
     Active Substance: RIVAROXABAN
     Indication: ANTICOAGULANT THERAPY
  3. TAPAZOLE [Suspect]
     Active Substance: METHIMAZOLE
     Indication: HYPERTHYROIDISM
     Dosage: UNK

REACTIONS (1)
  - Drug effect incomplete [Unknown]
